FAERS Safety Report 8469737-1 (Version None)
Quarter: 2012Q2

REPORT INFORMATION
  Report Type: 
  Country: None (occurrence: None)
  Receive Date: 20120626
  Receipt Date: 20120621
  Transmission Date: 20120825
  Serious: No
  Sender: FDA-Public Use
  Company Number: US-PFIZER INC-2012149902

PATIENT
  Sex: Male

DRUGS (1)
  1. IBUPROFEN (ADVIL) [Suspect]
     Indication: BACK PAIN
     Dosage: 5 CAPSULES OF UNK DOSE EVERY 5 HOURS
     Route: 048
     Dates: start: 20120620

REACTIONS (2)
  - OVERDOSE [None]
  - ERYTHEMA [None]
